FAERS Safety Report 9397206 (Version 1)
Quarter: 2013Q3

REPORT INFORMATION
  Report Type: Report from Study
  Country: CA (occurrence: CA)
  Receive Date: 20130712
  Receipt Date: 20130712
  Transmission Date: 20140515
  Serious: Yes (Hospitalization)
  Sender: FDA-Public Use
  Company Number: CA-JNJFOC-20130705377

PATIENT
  Sex: Male
  Weight: 53.07 kg

DRUGS (2)
  1. REMICADE [Suspect]
     Indication: COLITIS ULCERATIVE
     Route: 042
     Dates: start: 201206
  2. REMICADE [Suspect]
     Indication: COLITIS ULCERATIVE
     Dosage: THE CHANGE INDOSE EFFECTED FROM OCT AND NOV-2012
     Route: 042

REACTIONS (1)
  - Colitis ulcerative [Unknown]
